FAERS Safety Report 7213871-0 (Version None)
Quarter: 2011Q1

REPORT INFORMATION
  Report Type: 
  Country: None (occurrence: None)
  Receive Date: 20110106
  Receipt Date: 20101224
  Transmission Date: 20110831
  Serious: Yes (Death)
  Sender: FDA-Public Use
  Company Number: JP-ELI_LILLY_AND_COMPANY-JP201011007018

PATIENT
  Age: 85 Year
  Sex: Male
  Weight: 58 kg

DRUGS (14)
  1. LOXOPROFEN SODIUM [Concomitant]
     Indication: PLEURISY
     Dosage: 180 MG, DAILY (1/D)
     Dates: start: 20100401, end: 20101122
  2. RISPERDAL [Concomitant]
     Indication: INSOMNIA
     Dosage: 0.5 ML, DAILY (1/D)
     Dates: start: 20101122, end: 20101126
  3. ALLELOCK [Concomitant]
     Indication: ECZEMA
     Dosage: 10 MG, UNK
     Dates: start: 20100603, end: 20101119
  4. CODEINE PHOSPHATE [Concomitant]
     Indication: COUGH
     Dosage: 5 G, DAILY (1/D)
     Dates: start: 20101004, end: 20101119
  5. TEPRENONE [Concomitant]
     Indication: GASTRITIS
     Dosage: 150 MG, DAILY (1/D)
     Dates: start: 20100401, end: 20101122
  6. ALIMTA [Suspect]
     Indication: LUNG ADENOCARCINOMA STAGE I
  7. AVASTIN [Concomitant]
     Indication: LUNG ADENOCARCINOMA STAGE I
     Dosage: 900 MG, OTHER
     Route: 048
     Dates: start: 20101004, end: 20101028
  8. SEROQUEL [Concomitant]
     Indication: INSOMNIA
     Dosage: 25 MG, DAILY (1/D)
     Dates: start: 20101118, end: 20101122
  9. FOLIC ACID [Concomitant]
     Dosage: 0.5 MG, DAILY (1/D)
     Route: 048
     Dates: start: 20100930, end: 20101119
  10. PREDONINE [Concomitant]
     Indication: PLEURISY
     Dosage: 10 MG, DAILY (1/D)
     Dates: start: 20100923, end: 20101122
  11. NORVASC [Concomitant]
     Indication: HYPERTENSION
     Dosage: 5 MG, DAILY (1/D)
     Dates: start: 19800101, end: 20101122
  12. HYDROXOCOBALAMIN ACETATE [Concomitant]
     Dosage: 1 MG, DAILY (1/D)
     Route: 030
     Dates: start: 20100928
  13. BROTIZOLAM [Concomitant]
     Indication: INSOMNIA
     Dosage: 0.25 MG, DAILY (1/D)
     Dates: start: 20100624, end: 20101118
  14. OXYCONTIN [Concomitant]
     Indication: PAIN
     Dosage: 15 MG, DAILY (1/D)
     Dates: start: 20101013, end: 20101126

REACTIONS (3)
  - NEOPLASM MALIGNANT [None]
  - INTERSTITIAL LUNG DISEASE [None]
  - GASTROINTESTINAL HAEMORRHAGE [None]
